FAERS Safety Report 20360025 (Version 1)
Quarter: 2022Q1

REPORT INFORMATION
  Report Type: Report from Study
  Country: CA (occurrence: CA)
  Receive Date: 20220121
  Receipt Date: 20220121
  Transmission Date: 20220423
  Serious: Yes (Other)
  Sender: FDA-Public Use
  Company Number: CA-BRISTOL-MYERS SQUIBB COMPANY-BMS-2022-003835

PATIENT
  Age: 55 Year
  Sex: Female

DRUGS (3)
  1. HYDROXYUREA [Suspect]
     Active Substance: HYDROXYUREA
     Indication: Product used for unknown indication
     Dosage: UNK
     Route: 065
  2. TASIGNA [Suspect]
     Active Substance: NILOTINIB
     Indication: Chronic myeloid leukaemia
     Dosage: 400 MILLIGRAM, ONE EVERY ONE DAY
     Route: 048
  3. TASIGNA [Suspect]
     Active Substance: NILOTINIB
     Dosage: 300 MILLIGRAM, TWO EVERY ONE DAY
     Route: 048

REACTIONS (12)
  - Hyperthyroidism [Recovered/Resolved]
  - Abdominal discomfort [Recovered/Resolved]
  - Alopecia [Recovered/Resolved]
  - Arthralgia [Recovered/Resolved]
  - Bowel movement irregularity [Recovered/Resolved]
  - Decreased appetite [Recovered/Resolved]
  - Faecal volume decreased [Recovered/Resolved]
  - Gait disturbance [Recovered/Resolved]
  - Memory impairment [Recovered/Resolved]
  - Raynaud^s phenomenon [Recovered/Resolved]
  - Skin discolouration [Recovered/Resolved]
  - Thirst [Recovered/Resolved]
